FAERS Safety Report 4864317-9 (Version None)
Quarter: 2005Q4

REPORT INFORMATION
  Report Type: 
  Country: None (occurrence: None)
  Receive Date: 20051222
  Receipt Date: 20051005
  Transmission Date: 20060501
  Serious: Yes (Hospitalization, Disabling)
  Sender: FDA-Public Use
  Company Number: US-MERCK-0510USA04467

PATIENT
  Age: 51 Year
  Sex: Male
  Weight: 98 kg

DRUGS (4)
  1. VIOXX [Suspect]
     Indication: PAIN
     Route: 048
     Dates: start: 20000501, end: 20000901
  2. VIOXX [Suspect]
     Route: 048
     Dates: start: 20030801, end: 20031001
  3. BENICAR [Concomitant]
     Route: 065
  4. PRAVACHOL [Concomitant]
     Route: 065

REACTIONS (4)
  - ISCHAEMIC STROKE [None]
  - LIMB INJURY [None]
  - ROTATOR CUFF SYNDROME [None]
  - ULCER [None]
